FAERS Safety Report 9412278 (Version 1)
Quarter: 2013Q3

REPORT INFORMATION
  Report Type: Spontaneous
  Country: CO (occurrence: CO)
  Receive Date: 20130722
  Receipt Date: 20130722
  Transmission Date: 20140515
  Serious: Yes (Other)
  Sender: FDA-Public Use
  Company Number: CO-009507513-1307COL011477

PATIENT
  Age: 53 Year
  Sex: Male

DRUGS (3)
  1. REBETOL [Suspect]
     Dosage: 5 CAPSULES/DAY
     Route: 048
     Dates: start: 20130510
  2. PEG-INTRON [Suspect]
     Dosage: 1 AMPULE/WEEK
     Route: 058
     Dates: start: 20130510
  3. VICTRELIS [Suspect]
     Dosage: 4 CAPSULES EVERY 8 HOURS
     Route: 048
     Dates: start: 20130510

REACTIONS (4)
  - Pancytopenia [Not Recovered/Not Resolved]
  - Insomnia [Not Recovered/Not Resolved]
  - Weight decreased [Not Recovered/Not Resolved]
  - Asthenia [Not Recovered/Not Resolved]
